FAERS Safety Report 12204983 (Version 1)
Quarter: 2016Q1

REPORT INFORMATION
  Report Type: Report from Study
  Country: US (occurrence: US)
  Receive Date: 20160323
  Receipt Date: 20160323
  Transmission Date: 20160526
  Serious: No
  Sender: FDA-Public Use
  Company Number: US-MDT-ADR-2016-00490

PATIENT
  Age: 57 Year
  Sex: Male

DRUGS (10)
  1. OXYCODONE ER [Concomitant]
     Active Substance: OXYCODONE
  2. BACLOFEN, UNKNOWN [Suspect]
     Active Substance: BACLOFEN
     Indication: CHEMOTHERAPY
     Dosage: 140.07 MCG/DAY
     Route: 037
  3. BUPIVACAINE, INTRATHECAL [Suspect]
     Active Substance: BUPIVACAINE
     Dosage: 8.7170 MG/DAY
     Route: 037
  4. OXYCODONE HYDROCHLORIDE. [Concomitant]
     Active Substance: OXYCODONE HYDROCHLORIDE
  5. DILAUDID [Suspect]
     Active Substance: HYDROMORPHONE HYDROCHLORIDE
     Dosage: 0.65052 MG/DAY
     Route: 037
  6. DILAUDID [Suspect]
     Active Substance: HYDROMORPHONE HYDROCHLORIDE
     Dosage: 0.70037 MG/DAY
     Route: 037
  7. BUPIVACAINE, INTRATHECAL [Suspect]
     Active Substance: BUPIVACAINE
     Dosage: 9.3850 MG/DAY
     Route: 037
  8. BACLOFEN, UNKNOWN [Suspect]
     Active Substance: BACLOFEN
     Indication: NEOPLASM MALIGNANT
     Dosage: 130.10 MCG/DAY
     Route: 037
  9. BACLOFEN, UNKNOWN [Suspect]
     Active Substance: BACLOFEN
     Indication: CHEMOTHERAPY
     Dosage: 130.10 MCG/DAY
     Route: 037
  10. BACLOFEN, UNKNOWN [Suspect]
     Active Substance: BACLOFEN
     Indication: NEOPLASM MALIGNANT
     Dosage: 140.07 MCG/DAY
     Route: 037

REACTIONS (6)
  - Swelling [None]
  - Sedation [Recovered/Resolved]
  - Vomiting [None]
  - Limb discomfort [Recovered/Resolved]
  - Muscular weakness [Recovered/Resolved]
  - Nausea [Recovered/Resolved]

NARRATIVE: CASE EVENT DATE: 20150608
